FAERS Safety Report 9197768 (Version 1)
Quarter: 2013Q1

REPORT INFORMATION
  Report Type: Spontaneous
  Country: US (occurrence: None)
  Receive Date: 20120709
  Receipt Date: 20120709
  Transmission Date: 20140127
  Serious: Yes (Other)
  Sender: FDA-Public Use
  Company Number: PHEH2011US06435

PATIENT
  Age: 62 Year
  Sex: Female
  Weight: 146 kg

DRUGS (1)
  1. GLEEVEC (IMATINIB) UNKNOWN [Suspect]
     Indication: CHRONIC MYELOID LEUKAEMIA
     Route: 048
     Dates: start: 2001, end: 2011

REACTIONS (7)
  - Drug resistance [None]
  - Chronic myeloid leukaemia [None]
  - Gene mutation identification test positive [None]
  - White blood cell count increased [None]
  - Platelet count increased [None]
  - Nausea [None]
  - Vomiting [None]
